FAERS Safety Report 5574799-5 (Version None)
Quarter: 2007Q4

REPORT INFORMATION
  Report Type: 
  Country: None (occurrence: None)
  Receive Date: 20071130
  Receipt Date: 20070911
  Transmission Date: 20080405
  Serious: No
  Sender: FDA-Public Use
  Company Number: PHEH2007US12267

PATIENT
  Sex: Male

DRUGS (3)
  1. TEKTURNA [Suspect]
     Dosage: 150MG
  2. ALTACE [Concomitant]
  3. ATACAND HCT (CANDESARTAN CILEXETIL, HYDROCHLOROTHIAZIDE) [Concomitant]

REACTIONS (2)
  - COUGH [None]
  - THROAT IRRITATION [None]
